FAERS Safety Report 20591342 (Version 3)
Quarter: 2025Q3

REPORT INFORMATION
  Report Type: Spontaneous
  Country: US (occurrence: US)
  Receive Date: 20220314
  Receipt Date: 20250718
  Transmission Date: 20251020
  Serious: Yes (Death, Other)
  Sender: CSL BEHRING
  Company Number: US-BEH-2022143216

PATIENT
  Age: 82 Year
  Sex: Female

DRUGS (4)
  1. HIZENTRA [Suspect]
     Active Substance: HUMAN IMMUNOGLOBULIN G
     Indication: Immunodeficiency common variable
     Dosage: 3 G, QOW
     Route: 058
     Dates: start: 202104
  2. HIZENTRA [Suspect]
     Active Substance: HUMAN IMMUNOGLOBULIN G
     Dosage: 12 G, QOW
     Route: 058
     Dates: start: 202104
  3. HIZENTRA [Suspect]
     Active Substance: HUMAN IMMUNOGLOBULIN G
     Dosage: 15 G, QOW
     Route: 058
     Dates: start: 202104
  4. HIZENTRA [Suspect]
     Active Substance: HUMAN IMMUNOGLOBULIN G
     Dosage: 15 G, QOW
     Route: 058
     Dates: start: 202104

REACTIONS (4)
  - Death [Fatal]
  - Pruritus [Unknown]
  - Pruritus [Unknown]
  - Ankle fracture [Unknown]

NARRATIVE: CASE EVENT DATE: 20250709
